FAERS Safety Report 5553630-8 (Version None)
Quarter: 2007Q4

REPORT INFORMATION
  Report Type: 
  Country: None (occurrence: None)
  Receive Date: 20071213
  Receipt Date: 20071203
  Transmission Date: 20080405
  Serious: Yes (Hospitalization)
  Sender: FDA-Public Use
  Company Number: PHHO2007MX20136

PATIENT
  Age: 45 Year
  Sex: Female
  Weight: 77 kg

DRUGS (4)
  1. CGS 20267 [Suspect]
     Indication: BREAST CANCER
     Dosage: 2.5 MG, QD
     Route: 048
     Dates: start: 20040622
  2. CALCIUM [Concomitant]
  3. VITAMIN D [Concomitant]
  4. ZOLEDRONIC ACID [Suspect]
     Dosage: 4MG
     Route: 042
     Dates: start: 20040622

REACTIONS (4)
  - EXTERNAL FIXATION OF FRACTURE [None]
  - FRACTURE REDUCTION [None]
  - RADIUS FRACTURE [None]
  - TRAUMATIC FRACTURE [None]
